FAERS Safety Report 4409137-4 (Version None)
Quarter: 2004Q2

REPORT INFORMATION
  Report Type: 
  Country: None (occurrence: None)
  Receive Date: 20040618
  Receipt Date: 20040317
  Transmission Date: 20050107
  Serious: No
  Sender: FDA-Public Use
  Company Number: US-JNJFOC-20040304545

PATIENT
  Age: 33 Year
  Sex: Female
  Weight: 63.9572 kg

DRUGS (2)
  1. ORTHO EVRA [Suspect]
     Indication: CONTRACEPTION
     Dates: start: 20040304
  2. ANTIDIARRHEAL (LIQUID) OTHER ANTIDIARRHOEALS [Concomitant]

REACTIONS (1)
  - POLLAKIURIA [None]
